FAERS Safety Report 8890587 (Version 2)
Quarter: 2013Q1

REPORT INFORMATION
  Report Type: Spontaneous
  Country: US (occurrence: US)
  Receive Date: 20121107
  Receipt Date: 20130204
  Transmission Date: 20140127
  Serious: No
  Sender: FDA-Public Use
  Company Number: US-009507513-1211USA000837

PATIENT
  Age: 66 Year
  Sex: Male

DRUGS (12)
  1. SAPHRIS [Suspect]
     Indication: BIPOLAR DISORDER
     Dosage: 5 MG, BID
     Route: 060
     Dates: start: 201209
  2. ZYPREXA [Concomitant]
  3. LANTUS [Concomitant]
  4. NOVOLOG [Concomitant]
  5. WELCHOL [Concomitant]
  6. GEMFIBROZIL [Concomitant]
  7. LITHIUM CARBONATE [Concomitant]
  8. OLANZAPINE [Concomitant]
  9. AMITRIPTYLINE HYDROCHLORIDE [Concomitant]
  10. LORAZEPAM [Concomitant]
     Dosage: 2 MG, UNK
  11. ALLOPURINOL [Concomitant]
  12. OMEPRAZOLE [Concomitant]

REACTIONS (2)
  - Anxiety [Recovering/Resolving]
  - Dysgeusia [Unknown]
